FAERS Safety Report 9661038 (Version 4)
Quarter: 2014Q1

REPORT INFORMATION
  Report Type: Spontaneous
  Country: US (occurrence: US)
  Receive Date: 20131031
  Receipt Date: 20140205
  Transmission Date: 20141002
  Serious: Yes (Hospitalization)
  Sender: FDA-Public Use
  Company Number: US-GLAXOSMITHKLINE-A1047795A

PATIENT
  Age: 59 Year
  Sex: Male
  Weight: 82 kg

DRUGS (2)
  1. FLOLAN [Suspect]
     Indication: PULMONARY ARTERIAL HYPERTENSION
     Dosage: 27NGKM CONTINUOUS
     Route: 042
     Dates: start: 20020727
  2. COUMADIN [Concomitant]

REACTIONS (2)
  - Biopsy kidney [Recovered/Resolved]
  - Medical device complication [Recovered/Resolved]
